FAERS Safety Report 12718249 (Version 2)
Quarter: 2016Q4

REPORT INFORMATION
  Report Type: Report from Study
  Country: JP (occurrence: JP)
  Receive Date: 20160906
  Receipt Date: 20161024
  Transmission Date: 20170207
  Serious: Yes (Hospitalization)
  Sender: FDA-Public Use
  Company Number: JP-EISAI MEDICAL RESEARCH-EC-2016-020061

PATIENT
  Age: 94 Year
  Sex: Female

DRUGS (7)
  1. MADOPAR [Concomitant]
     Active Substance: BENSERAZIDE HYDROCHLORIDE\LEVODOPA
  2. ARICEPT [Suspect]
     Active Substance: DONEPEZIL HYDROCHLORIDE
     Indication: DEMENTIA WITH LEWY BODIES
     Route: 048
     Dates: start: 20160316, end: 20160401
  3. PURSENNID [Concomitant]
     Active Substance: SENNOSIDES A AND B
  4. PIROLACTON [Concomitant]
     Active Substance: SPIRONOLACTONE
  5. BONALON [Concomitant]
     Active Substance: ALENDRONATE SODIUM
  6. FLUITRAN [Concomitant]
     Active Substance: TRICHLORMETHIAZIDE
  7. ISOPIT [Concomitant]

REACTIONS (3)
  - Vomiting [Recovered/Resolved]
  - Gastritis [Recovered/Resolved]
  - Decreased appetite [Recovered/Resolved]

NARRATIVE: CASE EVENT DATE: 20160320
